FAERS Safety Report 8786570 (Version 1)
Quarter: 2012Q4

REPORT INFORMATION
  Report Type: 
  Country: US (occurrence: US)
  Receive Date: 20120914
  Receipt Date: 20120914
  Transmission Date: 20130627
  Serious: No
  Sender: FDA-Public Use
  Company Number: US-VERTEX PHARMACEUTICAL INC.-AE-2012-011320

PATIENT
  Age: 62 Year
  Sex: Male
  Weight: 84.91 kg

DRUGS (9)
  1. INCIVEK [Suspect]
     Indication: HEPATITIS C
     Route: 048
     Dates: start: 20120519
  2. PEGASYS [Concomitant]
     Indication: HEPATITIS C
     Route: 058
     Dates: start: 20120519
  3. RIBAVIRIN [Concomitant]
     Indication: HEPATITIS C
     Route: 048
     Dates: start: 20120519
  4. GABAPENTIN [Concomitant]
     Route: 048
  5. LITHIUM [Concomitant]
     Route: 048
  6. ABILIFY [Concomitant]
     Route: 048
  7. BUPROPOIN [Concomitant]
     Route: 048
  8. HCTZ [Concomitant]
     Route: 048
  9. BENADRYL [Concomitant]
     Route: 048

REACTIONS (7)
  - Depression [Not Recovered/Not Resolved]
  - Crying [Not Recovered/Not Resolved]
  - Weight decreased [Not Recovered/Not Resolved]
  - Pyrexia [Not Recovered/Not Resolved]
  - Cough [Not Recovered/Not Resolved]
  - Throat irritation [Not Recovered/Not Resolved]
  - Chills [Not Recovered/Not Resolved]
